FAERS Safety Report 9702747 (Version 1)
Quarter: 2013Q4

REPORT INFORMATION
  Report Type: Spontaneous
  Country: US (occurrence: US)
  Receive Date: 20131121
  Receipt Date: 20131121
  Transmission Date: 20140711
  Serious: Yes (Hospitalization, Other)
  Sender: FDA-Public Use
  Company Number: US-B.I. PHARMACEUTICALS,INC./RIDGEFIELD-2013-BI-37641GD

PATIENT
  Age: 15 Year
  Sex: Male

DRUGS (1)
  1. CLONIDINE [Suspect]

REACTIONS (3)
  - Unresponsive to stimuli [Unknown]
  - Accidental overdose [Unknown]
  - Medication error [Unknown]
